FAERS Safety Report 7557322-5 (Version None)
Quarter: 2011Q2

REPORT INFORMATION
  Report Type: 
  Country: None (occurrence: None)
  Receive Date: 20110620
  Receipt Date: 20110613
  Transmission Date: 20111010
  Serious: Yes (Other)
  Sender: FDA-Public Use
  Company Number: IT-ROCHE-782162

PATIENT

DRUGS (9)
  1. LANSOPRAZOLE [Suspect]
     Route: 065
  2. SIMVASTATIN [Suspect]
     Route: 065
  3. PIROXICAM [Suspect]
     Route: 065
  4. NAPROXEN [Suspect]
     Route: 065
  5. KAYEXALATE [Suspect]
     Route: 065
  6. NIMESULIDE [Suspect]
     Route: 065
  7. DICLOFENAC SODIUM [Suspect]
     Route: 065
  8. COCAINE [Suspect]
     Route: 065
  9. TICLOPIDINE HCL [Suspect]
     Route: 065

REACTIONS (3)
  - EOSINOPHILIC COLITIS [None]
  - COLITIS ISCHAEMIC [None]
  - COLITIS [None]
